FAERS Safety Report 8059369-1 (Version None)
Quarter: 2012Q1

REPORT INFORMATION
  Report Type: 
  Country: None (occurrence: None)
  Receive Date: 20120112
  Receipt Date: 20120104
  Transmission Date: 20120608
  Serious: Yes (Death)
  Sender: FDA-Public Use
  Company Number: 1000026792

PATIENT
  Age: 60 Year
  Sex: Male

DRUGS (4)
  1. PIPERACILLIN/TAZOBACTAM [Suspect]
  2. LEXAPRO [Suspect]
     Dosage: 20 MG (20 MG, 1 IN 1 D), ORAL
     Route: 048
  3. CIPROFLOXACIN [Suspect]
     Dosage: (600 MG)
     Dates: start: 20110403
  4. FLUCONAZOLE [Suspect]
     Dosage: (200 MG)
     Dates: start: 20110403

REACTIONS (4)
  - ELECTROCARDIOGRAM QT PROLONGED [None]
  - COLITIS ULCERATIVE [None]
  - SEPSIS [None]
  - CARDIAC ARREST [None]
